FAERS Safety Report 8446359 (Version 2)
Quarter: 2014Q2

REPORT INFORMATION
  Report Type: Report from Study
  Country: US (occurrence: US)
  Receive Date: 20120307
  Receipt Date: 20140627
  Transmission Date: 20141212
  Serious: Yes (Other)
  Sender: FDA-Public Use
  Company Number: US-B.I. PHARMACEUTICALS,INC./RIDGEFIELD-2011-BP-24900BP

PATIENT
  Age: 32 Year
  Sex: Female

DRUGS (3)
  1. VIRAMUNE [Suspect]
     Indication: ANTIVIRAL TREATMENT
     Dosage: 400 MG
     Route: 048
  2. RETROVIR [Concomitant]
     Dosage: 2000 MG
     Route: 042
     Dates: start: 20111125
  3. TRUVADA [Concomitant]
     Route: 048

REACTIONS (1)
  - Placenta praevia [Unknown]
